FAERS Safety Report 4674745-2 (Version None)
Quarter: 2005Q2

REPORT INFORMATION
  Report Type: 
  Country: None (occurrence: None)
  Receive Date: 20050526
  Receipt Date: 20050520
  Transmission Date: 20051028
  Serious: Yes (Death, Hospitalization)
  Sender: FDA-Public Use
  Company Number: PHBS2005TR07246

PATIENT
  Age: 46 Year
  Sex: Female

DRUGS (3)
  1. IMATINIB [Suspect]
     Indication: CHRONIC MYELOID LEUKAEMIA
  2. RADIOTHERAPY [Concomitant]
     Indication: LEUKAEMIA RECURRENT
  3. CHEMOTHERAPEUTICS,OTHER [Concomitant]
     Indication: LEUKAEMIA RECURRENT

REACTIONS (9)
  - BLAST CELLS [None]
  - BRONCHOPULMONARY ASPERGILLOSIS [None]
  - CONVULSION [None]
  - HEADACHE [None]
  - LEUKAEMIA RECURRENT [None]
  - LEUKOCYTOSIS [None]
  - MARROW HYPERPLASIA [None]
  - NEUTROPENIA [None]
  - NEUTROPHILIA [None]
